FAERS Safety Report 17208876 (Version 5)
Quarter: 2021Q3

REPORT INFORMATION
  Report Type: Report from Study
  Country: CO (occurrence: CO)
  Receive Date: 20191227
  Receipt Date: 20210907
  Transmission Date: 20211014
  Serious: Yes (Hospitalization)
  Sender: FDA-Public Use
  Company Number: NVSC2019CO005396

PATIENT
  Age: 88 Year
  Sex: Female
  Weight: 42 kg

DRUGS (11)
  1. HYDROCHLOROTHIAZIDE. [Suspect]
     Active Substance: HYDROCHLOROTHIAZIDE
     Indication: PRODUCT USED FOR UNKNOWN INDICATION
     Dosage: 25 MG
     Route: 065
  2. SPIRONOLACTONE. [Concomitant]
     Active Substance: SPIRONOLACTONE
     Indication: PRODUCT USED FOR UNKNOWN INDICATION
     Dosage: HALF TABLET, QD
     Route: 048
     Dates: start: 202004
  3. ENALAPRIL [Concomitant]
     Active Substance: ENALAPRIL
     Indication: HYPERTENSION
     Dosage: 5 MG, QD
     Route: 048
  4. SANDOSTATIN LAR DEPOT [Suspect]
     Active Substance: OCTREOTIDE ACETATE
     Dosage: 20 MG, QMO
     Route: 030
     Dates: start: 20191002
  5. CALCITRIOL. [Concomitant]
     Active Substance: CALCITRIOL
     Indication: PRODUCT USED FOR UNKNOWN INDICATION
     Dosage: UNK
     Route: 048
  6. LOSARTAN. [Suspect]
     Active Substance: LOSARTAN
     Indication: HYPERTENSION
     Dosage: UNK
     Route: 048
  7. ATORVASTATIN [Suspect]
     Active Substance: ATORVASTATIN
     Indication: BLOOD CHOLESTEROL INCREASED
     Dosage: 40 MG, QD
     Route: 048
  8. FURSEMIDE [Suspect]
     Active Substance: FUROSEMIDE
     Indication: PRODUCT USED FOR UNKNOWN INDICATION
     Dosage: UNK
     Route: 048
  9. SANDOSTATIN LAR DEPOT [Suspect]
     Active Substance: OCTREOTIDE ACETATE
     Indication: ACROMEGALY
     Dosage: 20 MG, QMO
     Route: 030
     Dates: start: 201810
  10. SANDOSTATIN LAR DEPOT [Suspect]
     Active Substance: OCTREOTIDE ACETATE
     Dosage: 20 MG, QMO
     Route: 030
     Dates: start: 20191104
  11. CARVEDILOL. [Suspect]
     Active Substance: CARVEDILOL
     Indication: HYPERTENSION
     Dosage: UNK, Q12H (FROM DEC 2019)
     Route: 048

REACTIONS (10)
  - Tension [Unknown]
  - Malaise [Unknown]
  - Asthenia [Unknown]
  - Thrombosis [Unknown]
  - Dizziness [Unknown]
  - Headache [Unknown]
  - Blood pressure decreased [Unknown]
  - Headache [Recovered/Resolved]
  - Nasopharyngitis [Recovered/Resolved]
  - Drug ineffective [Unknown]

NARRATIVE: CASE EVENT DATE: 20191004
